FAERS Safety Report 11258208 (Version 1)
Quarter: 2015Q3

REPORT INFORMATION
  Report Type: Spontaneous
  Country: US (occurrence: None)
  Receive Date: 20150709
  Receipt Date: 20150709
  Transmission Date: 20151125
  Serious: Yes (Death)
  Sender: FDA-Public Use
  Company Number: None

PATIENT
  Age: 12 Year
  Sex: Female
  Weight: 49.9 kg

DRUGS (1)
  1. TESSALON [Suspect]
     Active Substance: BENZONATATE
     Indication: COUGH

REACTIONS (1)
  - Overdose [None]

NARRATIVE: CASE EVENT DATE: 20141221
